FAERS Safety Report 8869384 (Version 2)
Quarter: 2013Q3

REPORT INFORMATION
  Report Type: Spontaneous
  Country: IT (occurrence: None)
  Receive Date: 20121024
  Receipt Date: 20130805
  Transmission Date: 20140515
  Serious: Yes (Hospitalization, Other)
  Sender: FDA-Public Use
  Company Number: 2012-0831

PATIENT
  Age: 62 Year
  Sex: Male
  Weight: 82 kg

DRUGS (10)
  1. CARFILZOMIB [Suspect]
     Dosage: (40 MG, DAYS 1, 2) , INTRAVENOUS
     Dates: start: 20111130, end: 20111201
  2. LENALIDOMIDE (LENALIDOMIDE) (CAPSULE) (LENALIDOMIDE) [Suspect]
     Indication: PLASMA CELL MYELOMA
     Dosage: 18.75 MG (25 MG, DAYS 1-21, EVERY 28 DAYS), ORAL
     Dates: start: 20111120, end: 20120326
  3. DEXAMETHASONE [Suspect]
     Indication: PLASMA CELL MYELOMA
     Dosage: 5.7143 MG (40 MG, DAYS 1, 8, 15, 22, EVERY 28 DAYS)?
     Dates: start: 20111130, end: 20120320
  4. ARANESP (DARBEPOETIN ALFA) (DARBEPOETIN ALFA) [Concomitant]
  5. BETADINE (POVIDONE-IODINE) (POVIDONE-IODINE) [Concomitant]
  6. CIPROXIN (CIPROFLOXACIN) (CIPROFLOXACIN) [Concomitant]
  7. LANSOPRAZOLE (LANSOPRAZOLE) (LANSOPRAZOLE) [Concomitant]
  8. MYELOSTIM (LENOGRASTIM) (LENOGRASTIM) [Concomitant]
  9. REPARIL (ESCIN) (ESCIN) [Concomitant]
  10. VALACICLOVIR (VALACICLOVIR) (VALACICLOVIR) [Concomitant]

REACTIONS (4)
  - Febrile neutropenia [None]
  - Thrombocytopenia [None]
  - Myelodysplastic syndrome [None]
  - Pneumonia [None]
